FAERS Safety Report 15042285 (Version 1)
Quarter: 2018Q2

REPORT INFORMATION
  Report Type: Spontaneous
  Country: CM (occurrence: CM)
  Receive Date: 20180621
  Receipt Date: 20180621
  Transmission Date: 20180711
  Serious: Yes (Disabling, Other)
  Sender: FDA-Public Use
  Company Number: CM-009507513-1806CMR008629

PATIENT
  Sex: Female

DRUGS (3)
  1. VENTOLINE (ALBUTEROL SULFATE) [Concomitant]
     Active Substance: ALBUTEROL SULFATE
     Dosage: UNK
  2. CELESTENE (BETAMETHASONE SODIUM PHOSPHATE) [Concomitant]
     Dosage: UNK
  3. AERIUS [Suspect]
     Active Substance: DESLORATADINE
     Dosage: UNK, TAKEN 3 WEEKS PER MONTH
     Route: 048
     Dates: start: 2005, end: 2013

REACTIONS (2)
  - Developmental delay [Not Recovered/Not Resolved]
  - Growth retardation [Not Recovered/Not Resolved]
